FAERS Safety Report 13753541 (Version 1)
Quarter: 2017Q3

REPORT INFORMATION
  Report Type: Spontaneous
  Country: US (occurrence: US)
  Receive Date: 20170714
  Receipt Date: 20170714
  Transmission Date: 20171127
  Serious: Yes (Hospitalization)
  Sender: FDA-Public Use
  Company Number: US-VERTEX PHARMACEUTICALS-2017-003655

PATIENT
  Sex: Male

DRUGS (3)
  1. CHEWABLE IRON [Concomitant]
  2. KALYDECO [Suspect]
     Active Substance: IVACAFTOR
     Indication: CYSTIC FIBROSIS
     Dosage: UNK, BID
     Route: 048
     Dates: start: 201612
  3. SODIUM CHLORIDE 3% [Concomitant]
     Active Substance: SODIUM CHLORIDE

REACTIONS (1)
  - Device related infection [Unknown]
